FAERS Safety Report 9584835 (Version 1)
Quarter: 2013Q4

REPORT INFORMATION
  Report Type: Spontaneous
  Country: US (occurrence: US)
  Receive Date: 20131002
  Receipt Date: 20131002
  Transmission Date: 20140711
  Serious: No
  Sender: FDA-Public Use
  Company Number: US-AMGEN-USASP2013055197

PATIENT
  Age: 46 Year
  Sex: Female

DRUGS (6)
  1. ENBREL [Suspect]
     Indication: PRODUCT USED FOR UNKNOWN INDICATION
     Dosage: 50 MG, QWK
     Route: 058
     Dates: start: 201304
  2. METHOTREXATE [Concomitant]
     Dosage: (250/10 ML) UNK
  3. FOLIC ACID [Concomitant]
     Dosage: UNK
  4. ZOLOFT [Concomitant]
     Dosage: 25 MG, UNK
  5. VITAMIN D3 [Concomitant]
     Dosage: 2000 UNIT, UNK
  6. FELDENE [Concomitant]
     Dosage: 10 MG, UNK

REACTIONS (3)
  - Aphonia [Unknown]
  - Dysphonia [Unknown]
  - Injection site discomfort [Unknown]
